FAERS Safety Report 22926529 (Version 2)
Quarter: 2025Q4

REPORT INFORMATION
  Report Type: Spontaneous
  Country: US (occurrence: US)
  Receive Date: 20230909
  Receipt Date: 20251217
  Transmission Date: 20260118
  Serious: No
  Sender: SANOFI AVENTIS
  Company Number: US-SA-SAC20230907000299

PATIENT
  Sex: Male

DRUGS (2)
  1. DUPIXENT [Suspect]
     Active Substance: DUPILUMAB
     Indication: Dermatitis atopic
     Dosage: 200 MG, QOW
     Route: 058
  2. DUPIXENT [Suspect]
     Active Substance: DUPILUMAB
     Indication: Transient acantholytic dermatosis

REACTIONS (4)
  - Incorrect dose administered [Unknown]
  - Accidental exposure to product [Unknown]
  - Exposure via skin contact [Unknown]
  - Product use in unapproved indication [Unknown]
